FAERS Safety Report 19006350 (Version 1)
Quarter: 2021Q1

REPORT INFORMATION
  Report Type: Report from Study
  Country: US (occurrence: US)
  Receive Date: 20210315
  Receipt Date: 20210315
  Transmission Date: 20210420
  Serious: Yes (Other)
  Sender: FDA-Public Use
  Company Number: US-EMD SERONO-9219292

PATIENT
  Age: 29 Year
  Sex: Male

DRUGS (2)
  1. REBIF [Suspect]
     Active Substance: INTERFERON BETA-1A
     Route: 058
     Dates: start: 20200501
  2. REBIF [Suspect]
     Active Substance: INTERFERON BETA-1A
     Indication: MULTIPLE SCLEROSIS
     Route: 058
     Dates: start: 202004, end: 202004

REACTIONS (3)
  - Renal impairment [Recovered/Resolved]
  - Hepatic enzyme increased [Recovered/Resolved]
  - Liver disorder [Unknown]

NARRATIVE: CASE EVENT DATE: 202101
